FAERS Safety Report 8154609-2 (Version None)
Quarter: 2012Q1

REPORT INFORMATION
  Report Type: 
  Country: None (occurrence: None)
  Receive Date: 20120221
  Receipt Date: 20120210
  Transmission Date: 20120608
  Serious: Yes (Other)
  Sender: FDA-Public Use
  Company Number: US-PERRIGO-12US001274

PATIENT
  Age: 42 Year
  Sex: Female
  Weight: 102.4 kg

DRUGS (5)
  1. LYRICA [Concomitant]
     Indication: PAIN IN EXTREMITY
     Dosage: 50 MG, BID
     Route: 065
     Dates: start: 20110101
  2. SIMVASTATIN [Concomitant]
     Indication: BLOOD CHOLESTEROL INCREASED
     Dosage: 50 MG, QD
     Route: 065
     Dates: start: 20110101
  3. KEPPRA [Concomitant]
     Indication: CONVULSION
     Dosage: 1000 MG, BID
     Route: 065
     Dates: start: 20030101
  4. METFORMIN HCL [Concomitant]
     Indication: DIABETES MELLITUS
     Dosage: 500 MG, BID
     Route: 065
     Dates: start: 20090101
  5. IBUPROFEN AND DIPHENHYDRAMINE [Suspect]
     Indication: MUSCLE SPASMS
     Dosage: 1 CAPLET, ONCE
     Route: 048
     Dates: start: 20120208, end: 20120208

REACTIONS (5)
  - DYSPNOEA [None]
  - UNRESPONSIVE TO STIMULI [None]
  - HYPERSENSITIVITY [None]
  - INCREASED UPPER AIRWAY SECRETION [None]
  - RESPIRATORY ARREST [None]
